FAERS Safety Report 7671294-4 (Version None)
Quarter: 2011Q3

REPORT INFORMATION
  Report Type: 
  Country: None (occurrence: None)
  Receive Date: 20110809
  Receipt Date: 20110804
  Transmission Date: 20111222
  Serious: Yes (Other)
  Sender: FDA-Public Use
  Company Number: JP-SANOFI-AVENTIS-2011SA050057

PATIENT
  Sex: Female
  Weight: 58 kg

DRUGS (5)
  1. LEUCOVORIN CALCIUM [Concomitant]
     Indication: COLON CANCER
     Route: 041
     Dates: start: 20090101
  2. OXALIPLATIN [Suspect]
     Route: 041
     Dates: start: 20090101
  3. FLUOROURACIL [Suspect]
     Route: 040
     Dates: start: 20090101
  4. AVASTIN [Concomitant]
     Indication: COLON CANCER
     Route: 041
  5. FLUOROURACIL [Suspect]
     Route: 041

REACTIONS (2)
  - HYPERAMMONAEMIA [None]
  - DEEP VEIN THROMBOSIS [None]
